FAERS Safety Report 6269292-0 (Version None)
Quarter: 2009Q3

REPORT INFORMATION
  Report Type: 
  Country: None (occurrence: None)
  Receive Date: 20090715
  Receipt Date: 20090708
  Transmission Date: 20100115
  Serious: Yes (Other)
  Sender: FDA-Public Use
  Company Number: PHHY2009BR28231

PATIENT
  Age: 37 Year
  Sex: Female

DRUGS (3)
  1. CYCLOSPORINE [Suspect]
     Indication: RENAL TRANSPLANT
     Dosage: UNK
  2. PREDNISOLONE [Concomitant]
     Indication: RENAL TRANSPLANT
  3. MYCOPHENOLATE MOFETIL [Concomitant]
     Indication: RENAL TRANSPLANT

REACTIONS (7)
  - CYSTITIS HAEMORRHAGIC [None]
  - DIABETES MELLITUS [None]
  - GLUCOSE TOLERANCE TEST ABNORMAL [None]
  - GRAFT LOSS [None]
  - PANCREAS TRANSPLANT REJECTION [None]
  - PANCREATITIS [None]
  - URETHRAL DISORDER [None]
